FAERS Safety Report 17792444 (Version 1)
Quarter: 2020Q2

REPORT INFORMATION
  Report Type: Report from Study
  Country: CA (occurrence: CA)
  Receive Date: 20200515
  Receipt Date: 20200515
  Transmission Date: 20200714
  Serious: Yes (Hospitalization, Other)
  Sender: FDA-Public Use
  Company Number: CA-BRISTOL-MYERS SQUIBB COMPANY-BMS-2020-038259

PATIENT
  Age: 72 Year
  Sex: Female

DRUGS (1)
  1. ABATACEPT [Suspect]
     Active Substance: ABATACEPT
     Indication: RHEUMATOID ARTHRITIS
     Dosage: 125 MILLIGRAM, Q4WK
     Route: 058
     Dates: start: 201902

REACTIONS (3)
  - Pulmonary fibrosis [Unknown]
  - Pneumonia [Unknown]
  - Influenza [Unknown]

NARRATIVE: CASE EVENT DATE: 201911
